FAERS Safety Report 5635059-7 (Version None)
Quarter: 2008Q1

REPORT INFORMATION
  Report Type: 
  Country: None (occurrence: None)
  Receive Date: 20080222
  Receipt Date: 20080220
  Transmission Date: 20080703
  Serious: Yes (Death, Other)
  Sender: FDA-Public Use
  Company Number: US-PFIZER INC-2007011913

PATIENT
  Sex: Male

DRUGS (3)
  1. BEXTRA [Suspect]
     Indication: ARTHRALGIA
     Dates: start: 20020222, end: 20031210
  2. BEXTRA [Suspect]
     Indication: BACK PAIN
  3. VIOXX [Suspect]

REACTIONS (1)
  - MYOCARDIAL INFARCTION [None]
